FAERS Safety Report 5290323-9 (Version None)
Quarter: 2007Q2

REPORT INFORMATION
  Report Type: 
  Country: None (occurrence: None)
  Receive Date: 20070409
  Receipt Date: 20070330
  Transmission Date: 20071010
  Serious: Yes (Other)
  Sender: FDA-Public Use
  Company Number: US-JNJFOC-20070400541

PATIENT
  Sex: Male
  Weight: 83.46 kg

DRUGS (2)
  1. FENTANYL TRANSDERMAL SYSTEM [Suspect]
     Indication: PAIN IN EXTREMITY
     Route: 062
  2. FENTANYL TRANSDERMAL SYSTEM [Suspect]
     Indication: BACK PAIN
     Route: 062

REACTIONS (12)
  - APPETITE DISORDER [None]
  - BODY TEMPERATURE DECREASED [None]
  - COLD SWEAT [None]
  - DIZZINESS [None]
  - FEELING OF BODY TEMPERATURE CHANGE [None]
  - GAIT DISTURBANCE [None]
  - HEADACHE [None]
  - HEART RATE DECREASED [None]
  - INITIAL INSOMNIA [None]
  - NAUSEA [None]
  - VERTIGO [None]
  - VISION BLURRED [None]
